FAERS Safety Report 5503477-3 (Version None)
Quarter: 2007Q4

REPORT INFORMATION
  Report Type: 
  Country: None (occurrence: None)
  Receive Date: 20071029
  Receipt Date: 20071012
  Transmission Date: 20080405
  Serious: Yes (Hospitalization)
  Sender: FDA-Public Use
  Company Number: 230028K07FRA

PATIENT
  Age: 48 Year
  Sex: Female
  Weight: 47 kg

DRUGS (2)
  1. REBIF [Suspect]
     Indication: MULTIPLE SCLEROSIS
     Dosage: SUBCUTANEOUS; 22 MCG, 3 IN 1 WEEKS, SUBCUTANEOUS
     Route: 058
     Dates: end: 20070806
  2. REBIF [Suspect]
     Indication: MULTIPLE SCLEROSIS
     Dosage: SUBCUTANEOUS; 22 MCG, 3 IN 1 WEEKS, SUBCUTANEOUS
     Route: 058
     Dates: start: 20070101

REACTIONS (7)
  - CALCULUS BLADDER [None]
  - INJECTION SITE REACTION [None]
  - PYOMYOSITIS [None]
  - SEPTIC SHOCK [None]
  - URINARY TRACT INFECTION [None]
  - WOUND INFECTION STAPHYLOCOCCAL [None]
  - WRONG TECHNIQUE IN DRUG USAGE PROCESS [None]
